FAERS Safety Report 20019882 (Version 3)
Quarter: 2021Q4

REPORT INFORMATION
  Report Type: Spontaneous
  Country: US (occurrence: US)
  Receive Date: 20211101
  Receipt Date: 20211119
  Transmission Date: 20220303
  Serious: Yes (Hospitalization, Other)
  Sender: FDA-Public Use
  Company Number: US-PFIZER INC-202101458248

PATIENT
  Age: 54 Year
  Sex: Female
  Weight: 82.55 kg

DRUGS (3)
  1. CHANTIX [Suspect]
     Active Substance: VARENICLINE TARTRATE
     Indication: Smoking cessation therapy
     Dosage: 0.5 MG
     Dates: start: 202010, end: 202010
  2. CHANTIX [Suspect]
     Active Substance: VARENICLINE TARTRATE
     Dosage: 20 MG
     Dates: start: 202102
  3. IBUPROFEN [Concomitant]
     Active Substance: IBUPROFEN
     Indication: Joint stiffness
     Dosage: UNK
     Dates: start: 2014

REACTIONS (4)
  - Nightmare [Recovering/Resolving]
  - Neoplasm malignant [Not Recovered/Not Resolved]
  - Functional gastrointestinal disorder [Unknown]
  - Abnormal dreams [Unknown]

NARRATIVE: CASE EVENT DATE: 20201001
